FAERS Safety Report 8130070-9 (Version None)
Quarter: 2012Q1

REPORT INFORMATION
  Report Type: 
  Country: None (occurrence: None)
  Receive Date: 20120210
  Receipt Date: 20120130
  Transmission Date: 20120608
  Serious: Yes (Other)
  Sender: FDA-Public Use
  Company Number: CHPA2012US002424

PATIENT
  Age: 74 Year
  Sex: Male

DRUGS (1)
  1. EXCEDRIN EXTRA STRENGTH TABLETS [Suspect]
     Indication: HEADACHE
     Dosage: 1 DF, PRN
     Route: 048
     Dates: end: 20110101

REACTIONS (8)
  - DIARRHOEA [None]
  - MYOCARDIAL INFARCTION [None]
  - LOSS OF CONSCIOUSNESS [None]
  - HEADACHE [None]
  - DIZZINESS [None]
  - HYPERSENSITIVITY [None]
  - HEART RATE ABNORMAL [None]
  - UNDERDOSE [None]
